FAERS Safety Report 9686679 (Version 2)
Quarter: 2014Q2

REPORT INFORMATION
  Report Type: Report from Study
  Country: US (occurrence: US)
  Receive Date: 20131113
  Receipt Date: 20140620
  Transmission Date: 20141212
  Serious: Yes (Hospitalization)
  Sender: FDA-Public Use
  Company Number: US-ABBVIE-13P-163-1166928-00

PATIENT
  Age: 49 Year
  Sex: Female
  Weight: 57.2 kg

DRUGS (20)
  1. HUMIRA [Suspect]
     Indication: CROHN^S DISEASE
     Dates: start: 200801, end: 200801
  2. HUMIRA [Suspect]
     Dosage: TWO WEEKS AFTER INITIAL DOSE
     Dates: start: 200801, end: 200801
  3. HUMIRA [Suspect]
     Dosage: FOUR WEEKS AFTER INITAL DOSE
     Dates: start: 200801
  4. PROBIOTICS [Concomitant]
     Indication: PRODUCT USED FOR UNKNOWN INDICATION
  5. TOPIRAMATE [Concomitant]
     Indication: MIGRAINE
  6. CLONAZEPAM [Concomitant]
     Indication: ANXIETY
  7. GENERIC LEVISON [Concomitant]
     Indication: CROHN^S DISEASE
  8. LOMOTIL [Concomitant]
     Indication: CROHN^S DISEASE
     Dosage: 2.5-0.025MG
  9. IMODIUM [Concomitant]
     Indication: CROHN^S DISEASE
  10. MULTIVITAMIN [Concomitant]
     Indication: PRODUCT USED FOR UNKNOWN INDICATION
  11. CALCIUM [Concomitant]
     Indication: MINERAL SUPPLEMENTATION
  12. VITAMIN D3 [Concomitant]
     Indication: VITAMIN SUPPLEMENTATION
  13. VITAMIN B12 [Concomitant]
     Indication: VITAMIN SUPPLEMENTATION
     Route: 060
  14. CLARITIN [Concomitant]
     Indication: PRODUCT USED FOR UNKNOWN INDICATION
  15. HYOSCYAMINE [Concomitant]
     Indication: PRODUCT USED FOR UNKNOWN INDICATION
  16. HYOSCYAMINE SULFATE [Concomitant]
     Indication: PRODUCT USED FOR UNKNOWN INDICATION
  17. ZOLOFT [Concomitant]
     Indication: PRODUCT USED FOR UNKNOWN INDICATION
  18. LORATADINE [Concomitant]
     Indication: PRODUCT USED FOR UNKNOWN INDICATION
  19. LACTULOSE [Concomitant]
     Indication: PRODUCT USED FOR UNKNOWN INDICATION
     Dosage: 10GRAMS/15ML
  20. SERTRALINE [Concomitant]
     Indication: PRODUCT USED FOR UNKNOWN INDICATION

REACTIONS (13)
  - Gastrointestinal anastomotic leak [Recovered/Resolved]
  - Abdominal distension [Recovering/Resolving]
  - Depression [Recovered/Resolved]
  - Fatigue [Unknown]
  - Sinusitis [Recovered/Resolved]
  - Abdominal pain [Not Recovered/Not Resolved]
  - Arthralgia [Recovering/Resolving]
  - Back pain [Recovering/Resolving]
  - Pain in extremity [Recovering/Resolving]
  - Bronchitis [Recovered/Resolved]
  - Diarrhoea [Recovering/Resolving]
  - Arthralgia [Recovering/Resolving]
  - Diarrhoea [Unknown]
